FAERS Safety Report 18413797 (Version 1)
Quarter: 2020Q4

REPORT INFORMATION
  Report Type: Report from Study
  Country: US (occurrence: US)
  Receive Date: 20201021
  Receipt Date: 20201021
  Transmission Date: 20210114
  Serious: Yes (Hospitalization, Other)
  Sender: FDA-Public Use
  Company Number: US-BRISTOL-MYERS SQUIBB COMPANY-BMS-2020-086493

PATIENT
  Age: 59 Year
  Sex: Male
  Weight: 56.1 kg

DRUGS (1)
  1. NIVOLUMAB [Suspect]
     Active Substance: NIVOLUMAB
     Indication: OROPHARYNGEAL CANCER
     Dosage: 480 MILLIGRAM
     Route: 065
     Dates: start: 20200603, end: 20200826

REACTIONS (1)
  - Pneumomediastinum [Unknown]

NARRATIVE: CASE EVENT DATE: 20201014
